FAERS Safety Report 15338873 (Version 1)
Quarter: 2018Q3

REPORT INFORMATION
  Report Type: Report from Study
  Country: BR (occurrence: BR)
  Receive Date: 20180831
  Receipt Date: 20180831
  Transmission Date: 20181010
  Serious: Yes (Hospitalization)
  Sender: FDA-Public Use
  Company Number: BR-B.I. PHARMACEUTICALS,INC./RIDGEFIELD-2017-BI-047508

PATIENT
  Age: 57 Year
  Sex: Male
  Weight: 90 kg

DRUGS (13)
  1. APRESOLINA [Concomitant]
     Active Substance: HYDRALAZINE HYDROCHLORIDE
     Indication: HYPERTENSION
     Route: 048
     Dates: start: 2015
  2. CLORIDRATO DE DORZOLOAMIDA [Concomitant]
     Route: 031
     Dates: start: 2014
  3. SERETIDE [Concomitant]
     Active Substance: FLUTICASONE PROPIONATE\SALMETEROL XINAFOATE
     Indication: IDIOPATHIC PULMONARY FIBROSIS
  4. SPIRIVA RESPIMAT [Suspect]
     Active Substance: TIOTROPIUM BROMIDE
     Indication: FATIGUE
     Route: 065
  5. CLORIDRATO DE DORZOLOAMIDA [Concomitant]
     Indication: GLAUCOMA
     Route: 048
     Dates: start: 2009
  6. OFEV [Suspect]
     Active Substance: NINTEDANIB
     Indication: IDIOPATHIC PULMONARY FIBROSIS
     Route: 048
     Dates: start: 20170201
  7. SERETIDE [Concomitant]
     Active Substance: FLUTICASONE PROPIONATE\SALMETEROL XINAFOATE
     Indication: DRUG THERAPY
     Route: 048
     Dates: start: 2014
  8. VITAMINA D [Concomitant]
     Indication: DRUG THERAPY
     Route: 048
     Dates: start: 201708
  9. DIPIRONA [Concomitant]
     Active Substance: METAMIZOLE
     Indication: PAIN
     Dosage: DAILY DOSE: 1 TABLET AS NEEDED FOR PAIN
     Route: 048
     Dates: start: 2012
  10. CLORIDRATO DE DORZOLOAMIDA [Concomitant]
     Route: 031
     Dates: start: 201708
  11. SERETIDE [Concomitant]
     Active Substance: FLUTICASONE PROPIONATE\SALMETEROL XINAFOATE
     Indication: BLOOD PRESSURE ABNORMAL
  12. CLORIDRATO DE NAFAZOLINA [Concomitant]
     Indication: DRUG THERAPY
     Route: 031
     Dates: start: 2014
  13. OMEPRAZOL [Concomitant]
     Active Substance: OMEPRAZOLE
     Indication: GASTROOESOPHAGEAL REFLUX DISEASE
     Route: 048

REACTIONS (16)
  - Influenza [Recovered/Resolved]
  - Influenza [Recovered/Resolved]
  - Rhinitis [Not Recovered/Not Resolved]
  - Sinusitis [Not Recovered/Not Resolved]
  - Respiratory tract infection [Recovered/Resolved]
  - Off label use [Unknown]
  - Oropharyngeal pain [Not Recovered/Not Resolved]
  - Malaise [Recovered/Resolved]
  - Fatigue [Not Recovered/Not Resolved]
  - Infection [Recovered/Resolved]
  - Pyrexia [Not Recovered/Not Resolved]
  - Lung infection [Recovered/Resolved]
  - Fatigue [Not Recovered/Not Resolved]
  - Secretion discharge [Recovered/Resolved]
  - Rhinitis [Not Recovered/Not Resolved]
  - Rhinitis [Not Recovered/Not Resolved]

NARRATIVE: CASE EVENT DATE: 20170812
